FAERS Safety Report 7769679-0 (Version None)
Quarter: 2011Q3

REPORT INFORMATION
  Report Type: 
  Country: None (occurrence: None)
  Receive Date: 20110922
  Receipt Date: 20100827
  Transmission Date: 20111222
  Serious: No
  Sender: FDA-Public Use
  Company Number: US-ASTRAZENECA-2008UW04295

PATIENT
  Age: 17413 Day
  Sex: Male
  Weight: 105.7 kg

DRUGS (23)
  1. PAXIL [Concomitant]
     Route: 048
  2. DEPAKOTE [Concomitant]
     Dosage: 500MG-1000MG
     Route: 048
  3. SEROQUEL [Suspect]
     Dosage: 100MG - 1000MG
     Route: 048
     Dates: start: 20001212, end: 20080404
  4. RISPERDAL [Concomitant]
     Route: 048
  5. LITHIUM CARBONATE [Concomitant]
     Route: 048
  6. ZYPREXA [Concomitant]
     Route: 048
     Dates: start: 19970101, end: 20010101
  7. ELAVIL [Concomitant]
     Route: 048
  8. SEROQUEL [Suspect]
     Dosage: 2400 MG
     Route: 048
     Dates: start: 20040405
  9. ZYPREXA [Concomitant]
     Route: 048
     Dates: start: 19970101, end: 20010101
  10. SEROQUEL [Suspect]
     Dosage: 100MG - 1000MG
     Route: 048
     Dates: start: 20001212, end: 20080404
  11. ZYPREXA [Concomitant]
     Indication: DEPRESSION
     Route: 048
  12. SEROQUEL [Suspect]
     Indication: POST-TRAUMATIC STRESS DISORDER
     Route: 048
     Dates: start: 20000201, end: 20071219
  13. ZYPREXA [Concomitant]
     Indication: BIPOLAR DISORDER
     Route: 048
  14. ZYPREXA [Concomitant]
     Indication: POST-TRAUMATIC STRESS DISORDER
     Route: 048
  15. SEROQUEL [Suspect]
     Dosage: 2400 MG
     Route: 048
     Dates: start: 20040405
  16. ZYPREXA [Concomitant]
     Route: 048
     Dates: start: 19970101, end: 20010101
  17. LIPITOR [Concomitant]
  18. SEROQUEL [Suspect]
     Indication: DEPRESSION
     Route: 048
     Dates: start: 20000201, end: 20071219
  19. SEROQUEL [Suspect]
     Indication: BIPOLAR DISORDER
     Route: 048
     Dates: start: 20000201, end: 20071219
  20. SEROQUEL [Suspect]
     Dosage: 100MG - 1000MG
     Route: 048
     Dates: start: 20001212, end: 20080404
  21. SEROQUEL [Suspect]
     Dosage: 2400 MG
     Route: 048
     Dates: start: 20040405
  22. EFFEXOR XR [Concomitant]
     Route: 048
  23. CLOZAPINE [Concomitant]

REACTIONS (4)
  - WEIGHT INCREASED [None]
  - DIABETIC COMPLICATION [None]
  - OBESITY [None]
  - TYPE 2 DIABETES MELLITUS [None]
